FAERS Safety Report 6191654-0 (Version None)
Quarter: 2009Q2

REPORT INFORMATION
  Report Type: 
  Country: None (occurrence: None)
  Receive Date: 20090515
  Receipt Date: 20090505
  Transmission Date: 20091009
  Serious: Yes (Other)
  Sender: FDA-Public Use
  Company Number: US-PFIZER INC-2009157188

PATIENT
  Sex: Female
  Weight: 68.027 kg

DRUGS (4)
  1. LYRICA [Suspect]
     Indication: NEUROPATHY PERIPHERAL
     Dosage: 50 MG, 3X/DAY
     Dates: start: 20080520, end: 20080625
  2. LYRICA [Suspect]
     Indication: RESTLESS LEGS SYNDROME
  3. NEURONTIN [Concomitant]
     Dosage: 300 MG, 3X/DAY
  4. MIRAPEX [Concomitant]
     Dosage: UNK

REACTIONS (4)
  - BODY HEIGHT DECREASED [None]
  - FRACTURE [None]
  - ROAD TRAFFIC ACCIDENT [None]
  - SOMNOLENCE [None]
